FAERS Safety Report 9774805 (Version 1)
Quarter: 2013Q4

REPORT INFORMATION
  Report Type: Spontaneous
  Country: US (occurrence: None)
  Receive Date: 20131219
  Receipt Date: 20131219
  Transmission Date: 20140711
  Serious: Yes (Other)
  Sender: FDA-Public Use
  Company Number: None

PATIENT
  Age: 77 Year
  Sex: Female
  Weight: 75.3 kg

DRUGS (7)
  1. ATORVASTATIN CALCIUM [Suspect]
     Indication: BLOOD CHOLESTEROL INCREASED
     Dosage: BY MOUTH
     Route: 048
     Dates: start: 20120802, end: 20131205
  2. DYAZIDE [Concomitant]
  3. ALPRAZOLAM [Concomitant]
  4. VITAMIN E [Concomitant]
  5. VITAMIN C [Concomitant]
  6. GERITOL [Concomitant]
  7. CALCIUM WITH VITAMIN D [Concomitant]

REACTIONS (12)
  - Muscular weakness [None]
  - Muscular weakness [None]
  - Pain [None]
  - Musculoskeletal stiffness [None]
  - Nausea [None]
  - Diarrhoea [None]
  - Abdominal pain upper [None]
  - Nasal congestion [None]
  - Decreased appetite [None]
  - Weight decreased [None]
  - Pain in extremity [None]
  - Muscular weakness [None]
